FAERS Safety Report 10719798 (Version 1)
Quarter: 2015Q1

REPORT INFORMATION
  Report Type: Spontaneous
  Country: US (occurrence: US)
  Receive Date: 20150119
  Receipt Date: 20150119
  Transmission Date: 20150721
  Serious: Yes (Hospitalization)
  Sender: FDA-Public Use
  Company Number: US-BIOGENIDEC-2015BI001967

PATIENT
  Age: 37 Year
  Sex: Female

DRUGS (1)
  1. TECFIDERA [Suspect]
     Active Substance: DIMETHYL FUMARATE
     Indication: RELAPSING-REMITTING MULTIPLE SCLEROSIS
     Route: 048
     Dates: start: 201310, end: 201409

REACTIONS (7)
  - Flushing [Recovered/Resolved]
  - Hysterectomy [Recovered/Resolved]
  - General symptom [Recovered/Resolved]
  - Vomiting [Recovered/Resolved]
  - Weight decreased [Recovered/Resolved]
  - Muscle spasms [Recovered/Resolved]
  - Diarrhoea [Recovered/Resolved]

NARRATIVE: CASE EVENT DATE: 201310
